FAERS Safety Report 21305397 (Version 1)
Quarter: 2022Q3

REPORT INFORMATION
  Report Type: Spontaneous
  Country: FR (occurrence: FR)
  Receive Date: 20220908
  Receipt Date: 20220908
  Transmission Date: 20221027
  Serious: Yes (Hospitalization, Congenital Anomaly, Other)
  Sender: FDA-Public Use
  Company Number: FR-AFSSAPS-PC20222012

PATIENT
  Age: 1 Year
  Sex: Female
  Weight: 1.04 kg

DRUGS (4)
  1. CARBOPLATIN [Suspect]
     Active Substance: CARBOPLATIN
     Indication: Breast cancer
     Dosage: 3 CYCLES
     Route: 064
     Dates: start: 202002, end: 20200416
  2. PACLITAXEL [Suspect]
     Active Substance: PACLITAXEL
     Indication: Breast cancer
     Dosage: 3 CYCLES
     Route: 064
     Dates: start: 202002, end: 20200416
  3. CYCLOPHOSPHAMIDE [Suspect]
     Active Substance: CYCLOPHOSPHAMIDE
     Indication: Breast cancer
     Dosage: 4 CYCLES
     Route: 064
     Dates: start: 20191119, end: 202001
  4. EPIRUBICIN [Suspect]
     Active Substance: EPIRUBICIN
     Indication: Breast cancer
     Dosage: 4 CYCLES
     Route: 064
     Dates: start: 20191119, end: 202001

REACTIONS (3)
  - Foetal growth restriction [Not Recovered/Not Resolved]
  - Brachydactyly [Not Recovered/Not Resolved]
  - Atrial septal defect [Not Recovered/Not Resolved]

NARRATIVE: CASE EVENT DATE: 20200501
